FAERS Safety Report 9770956 (Version 1)
Quarter: 2013Q4

REPORT INFORMATION
  Report Type: Spontaneous
  Country: US (occurrence: US)
  Receive Date: 20131218
  Receipt Date: 20131218
  Transmission Date: 20140711
  Serious: No
  Sender: FDA-Public Use
  Company Number: US-TEVA-448850USA

PATIENT
  Sex: 0

DRUGS (1)
  1. QNASL [Suspect]

REACTIONS (3)
  - Product odour abnormal [Recovered/Resolved]
  - Device malfunction [Recovered/Resolved]
  - Visual impairment [Recovered/Resolved]
